FAERS Safety Report 8189843 (Version 3)
Quarter: 2012Q4

REPORT INFORMATION
  Report Type: 
  Country: FR (occurrence: FR)
  Receive Date: 20111019
  Receipt Date: 20121105
  Transmission Date: 20130627
  Serious: Yes (Hospitalization)
  Sender: FDA-Public Use
  Company Number: PHHO2011FR16069

PATIENT
  Age: 57 Year
  Sex: Male
  Weight: 89 kg

DRUGS (3)
  1. PLACEBO [Suspect]
     Indication: CARDIAC FAILURE ACUTE
     Route: 048
     Dates: start: 20101001, end: 20110828
  2. FUROSEMIDE [Suspect]
  3. SPIRONOLACTONE [Suspect]

REACTIONS (8)
  - Hyperkalaemia [Recovered/Resolved]
  - Renal failure acute [Recovered/Resolved]
  - Hyponatraemia [Recovered/Resolved]
  - Hypovolaemia [Recovered/Resolved]
  - Device breakage [Recovering/Resolving]
  - Anaemia postoperative [Recovered/Resolved]
  - Septic shock [Recovered/Resolved]
  - Concomitant disease progression [Recovering/Resolving]
